FAERS Safety Report 10285194 (Version 1)
Quarter: 2014Q3

REPORT INFORMATION
  Report Type: Spontaneous
  Country: US (occurrence: None)
  Receive Date: 20140703
  Receipt Date: 20140703
  Transmission Date: 20150326
  Serious: Yes (Life-Threatening)
  Sender: FDA-Public Use
  Company Number: None

PATIENT
  Age: 48 Year
  Sex: Female
  Weight: 51.71 kg

DRUGS (1)
  1. LEVETIRACETAM (1000 MG) 1000 MG [Suspect]
     Active Substance: LEVETIRACETAM
     Indication: CONVULSION
     Dosage: 180  TWICE A DAY ORAL
     Route: 048
     Dates: start: 20110916, end: 20111020

REACTIONS (3)
  - Drug ineffective [None]
  - Treatment failure [None]
  - Product substitution issue [None]

NARRATIVE: CASE EVENT DATE: 20111024
